FAERS Safety Report 5217574-3 (Version None)
Quarter: 2007Q1

REPORT INFORMATION
  Report Type: 
  Country: None (occurrence: None)
  Receive Date: 20070124
  Receipt Date: 20060407
  Transmission Date: 20070707
  Serious: No
  Sender: FDA-Public Use
  Company Number: US-GLAXOSMITHKLINE-A0600909A

PATIENT
  Age: 62 Year
  Sex: Male

DRUGS (3)
  1. PAXIL CR [Suspect]
     Indication: DEPRESSION
     Dosage: 12.5MG PER DAY
     Route: 048
  2. NORVASC [Concomitant]
  3. PAROXETINE HYDROCHLORIDE [Concomitant]
     Route: 048

REACTIONS (4)
  - AMNESIA [None]
  - DRUG INEFFECTIVE [None]
  - INSOMNIA [None]
  - MEDICATION ERROR [None]
